FAERS Safety Report 9611633 (Version 2)
Quarter: 2013Q4

REPORT INFORMATION
  Report Type: Report from Study
  Country: US (occurrence: US)
  Receive Date: 20131010
  Receipt Date: 20131031
  Transmission Date: 20140711
  Serious: No
  Sender: FDA-Public Use
  Company Number: US-BAYER-2013-121592

PATIENT
  Age: 66 Year
  Sex: Female
  Weight: 77.1 kg

DRUGS (5)
  1. BETASERON [Suspect]
     Indication: MULTIPLE SCLEROSIS
     Dosage: UNK
     Dates: start: 20091204, end: 20110221
  2. BETASERON [Suspect]
     Indication: MULTIPLE SCLEROSIS
     Dosage: 8 MIU, QOD
     Route: 058
     Dates: start: 20130708, end: 20131007
  3. ZETIA [Concomitant]
  4. OMEPRAZOLE [Concomitant]
  5. EVISTA [RALOXIFENE HYDROCHLORIDE] [Concomitant]

REACTIONS (1)
  - Hepatic enzyme increased [None]
